FAERS Safety Report 8112308-7 (Version None)
Quarter: 2012Q1

REPORT INFORMATION
  Report Type: 
  Country: None (occurrence: None)
  Receive Date: 20120203
  Receipt Date: 20120125
  Transmission Date: 20120608
  Serious: Yes (Hospitalization)
  Sender: FDA-Public Use
  Company Number: JP-SANOFI-AVENTIS-2012SA005675

PATIENT
  Age: 63 Year
  Sex: Male
  Weight: 54 kg

DRUGS (15)
  1. MONTELUKAST SODIUM [Concomitant]
     Indication: ASTHMA
     Route: 048
     Dates: end: 20120115
  2. THEO-DUR [Concomitant]
     Indication: ASTHMA
     Route: 048
     Dates: end: 20120115
  3. TS-1 [Suspect]
     Route: 048
     Dates: start: 20111011
  4. ADALAT [Concomitant]
     Indication: HYPERTENSION
     Route: 048
     Dates: end: 20120115
  5. TS-1 [Suspect]
     Route: 048
     Dates: start: 20120110
  6. BEROTEC [Concomitant]
     Indication: ASTHMA
     Route: 025
     Dates: end: 20120115
  7. OXALIPLATIN [Suspect]
     Route: 041
     Dates: start: 20111011
  8. TS-1 [Suspect]
     Route: 048
     Dates: start: 20111101
  9. OXALIPLATIN [Suspect]
     Indication: GASTRIC CANCER
     Route: 041
     Dates: start: 20110405
  10. OXALIPLATIN [Suspect]
     Route: 041
     Dates: start: 20111101
  11. TS-1 [Suspect]
     Indication: GASTRIC CANCER
     Route: 048
     Dates: start: 20110405
  12. CICLESONIDE [Concomitant]
     Indication: ASTHMA
     Route: 025
     Dates: end: 20120115
  13. LYRICA [Concomitant]
     Indication: NEUROPATHY PERIPHERAL
     Route: 048
     Dates: start: 20111011, end: 20120115
  14. OXALIPLATIN [Suspect]
     Route: 041
     Dates: start: 20120110
  15. ACETAMINOPHEN [Concomitant]
     Indication: ANTIPYRESIS
     Route: 048
     Dates: start: 20120115

REACTIONS (1)
  - ACUTE RESPIRATORY FAILURE [None]
